FAERS Safety Report 5468591-X (Version None)
Quarter: 2007Q3

REPORT INFORMATION
  Report Type: 
  Country: None (occurrence: None)
  Receive Date: 20070926
  Receipt Date: 20070911
  Transmission Date: 20080115
  Serious: Yes (Hospitalization)
  Sender: FDA-Public Use
  Company Number: US-BAUSCH-2007BL003297

PATIENT
  Sex: Male

DRUGS (4)
  1. LOTEMAX [Suspect]
     Indication: VISION BLURRED
     Route: 047
  2. ANTI-DIABETICS [Concomitant]
     Indication: DIABETES MELLITUS
  3. UNSPECIFIED MEDICATION FOR ALZHEIMER'S DISEASE [Concomitant]
     Indication: DEMENTIA ALZHEIMER'S TYPE
  4. LUMIGAN [Concomitant]
     Indication: VISION BLURRED

REACTIONS (2)
  - BLOOD GLUCOSE DECREASED [None]
  - HEADACHE [None]
